FAERS Safety Report 8852646 (Version 2)
Quarter: 2013Q1

REPORT INFORMATION
  Report Type: Spontaneous
  Country: DK (occurrence: DK)
  Receive Date: 20121022
  Receipt Date: 20130326
  Transmission Date: 20140127
  Serious: Yes (Hospitalization)
  Sender: FDA-Public Use
  Company Number: DK-PFIZER INC-2012259827

PATIENT
  Age: 51 Year
  Sex: Male

DRUGS (1)
  1. ZELDOX [Suspect]
     Indication: PSYCHOTIC DISORDER
     Dosage: 40 MG, 2X/DAY
     Route: 048
     Dates: start: 20091001, end: 20120815

REACTIONS (3)
  - Demyelinating polyneuropathy [Recovered/Resolved with Sequelae]
  - Muscular weakness [Not Recovered/Not Resolved]
  - Sensory disturbance [Recovering/Resolving]
